FAERS Safety Report 8785312 (Version 2)
Quarter: 2012Q4

REPORT INFORMATION
  Report Type: 
  Country: US (occurrence: US)
  Receive Date: 20120914
  Receipt Date: 20120921
  Transmission Date: 20130627
  Serious: No
  Sender: FDA-Public Use
  Company Number: US-PFIZER INC-2012225454

PATIENT
  Sex: Female

DRUGS (3)
  1. NEURONTIN [Suspect]
     Dosage: UNK
     Dates: start: 20120807, end: 20120905
  2. GLUCOTROL [Suspect]
     Dosage: UNK
  3. NICOTROL INHALER [Suspect]
     Dosage: UNK

REACTIONS (2)
  - Pain [Unknown]
  - Hypoaesthesia [Unknown]
